FAERS Safety Report 5050369-2 (Version None)
Quarter: 2006Q3

REPORT INFORMATION
  Report Type: 
  Country: None (occurrence: None)
  Receive Date: 20060707
  Receipt Date: 20060619
  Transmission Date: 20061208
  Serious: Yes (Death)
  Sender: FDA-Public Use
  Company Number: 2006BL003572

PATIENT
  Age: 78 Year
  Sex: Female

DRUGS (10)
  1. DEXAMETHASONE SODIUM PHOSPHATE [Suspect]
     Dosage: 4 MILLIGRAMS, DAILY; ORAL
     Route: 048
  2. AQUEOUS CREAM [Suspect]
  3. LACTULOSE [Suspect]
     Dosage: DAILY; ORAL
     Route: 048
  4. LANSOPRAZOLE [Suspect]
     Dosage: 15 MILLIGRAMS; DAILY; ORAL
     Route: 048
  5. ACETAMINOPHEN [Suspect]
     Dosage: DAILY; ORAL
     Route: 048
  6. QUININE SULFATE [Suspect]
     Dosage: 300 MILLIGRAMS; DAILY; ORAL
     Route: 048
  7. ALBUTEROL SPIROS [Suspect]
     Dosage: OROPHARYNGEAL
     Route: 049
  8. SENNA [Suspect]
     Dosage: DAILY; ORAL
     Route: 048
  9. SERETIDE [Suspect]
     Dosage: DAILY; OROPHARYNGEAL
     Route: 049
  10. SPIRIVA [Suspect]
     Indication: CHRONIC OBSTRUCTIVE PULMONARY DISEASE
     Dosage: DAILY; OROPHARYNGEAL
     Route: 049

REACTIONS (1)
  - NON-HODGKIN'S LYMPHOMA [None]
